FAERS Safety Report 10056772 (Version 3)
Quarter: 2014Q2

REPORT INFORMATION
  Report Type: Report from Study
  Country: GB (occurrence: GB)
  Receive Date: 20140403
  Receipt Date: 20140513
  Transmission Date: 20141212
  Serious: Yes (Death)
  Sender: FDA-Public Use
  Company Number: GB-GLAXOSMITHKLINE-B0982355A

PATIENT
  Sex: Male
  Weight: 56 kg

DRUGS (11)
  1. PAZOPANIB [Suspect]
     Indication: BLADDER NEOPLASM
     Dosage: 800MG PER DAY
     Route: 048
     Dates: start: 20140304, end: 20140330
  2. OMEPRAZOLE [Concomitant]
     Indication: DYSPEPSIA
     Dosage: 20MG PER DAY
     Route: 048
     Dates: start: 20140221
  3. DOCUSATE [Concomitant]
     Indication: CONSTIPATION
     Dosage: 200MG TWICE PER DAY
     Route: 048
     Dates: start: 20140221
  4. DIAZEPAM [Concomitant]
     Indication: ANXIETY
     Dosage: 5MG PER DAY
     Route: 048
     Dates: start: 20140101
  5. CLONAZEPAM [Concomitant]
     Indication: ANXIETY
     Dosage: 1MG PER DAY
     Route: 048
     Dates: start: 20140221
  6. GABAPENTIN [Concomitant]
     Indication: PAIN
     Route: 048
     Dates: start: 20140108
  7. LAXIDO [Concomitant]
     Indication: CONSTIPATION
     Dosage: 1SAC AS REQUIRED
     Route: 048
     Dates: start: 20140425
  8. HYOSCINE [Concomitant]
     Indication: ABDOMINAL PAIN
     Dosage: 20MG TWICE PER DAY
     Route: 048
     Dates: start: 20140221
  9. METOCLOPRAMIDE [Concomitant]
     Indication: PROPHYLAXIS OF NAUSEA AND VOMITING
     Dosage: 10MG THREE TIMES PER DAY
     Route: 048
     Dates: start: 20140304
  10. LOPERAMIDE [Concomitant]
     Indication: PROPHYLAXIS AGAINST DIARRHOEA
     Dosage: 2MG AS REQUIRED
     Route: 048
     Dates: start: 20140304
  11. FENTANYL [Concomitant]
     Indication: PAIN
     Dates: start: 20140221

REACTIONS (1)
  - Neoplasm [Fatal]
